FAERS Safety Report 8415153-8 (Version None)
Quarter: 2012Q2

REPORT INFORMATION
  Report Type: 
  Country: None (occurrence: None)
  Receive Date: 20120606
  Receipt Date: 20120530
  Transmission Date: 20120825
  Serious: No
  Sender: FDA-Public Use
  Company Number: US-PFIZER INC-2012114239

PATIENT
  Sex: Female

DRUGS (19)
  1. DAYPRO [Suspect]
     Dosage: UNK
  2. ERYTHROMYCIN [Suspect]
     Dosage: UNK
  3. TETRACYCLINE HYDROCHLORIDE [Suspect]
     Dosage: UNK
  4. CHONDROITIN/GLUCOSAMINE [Suspect]
     Dosage: UNK
  5. MOBIC [Suspect]
     Dosage: UNK
  6. AZITHROMYCIN [Suspect]
     Dosage: UNK
  7. CHLOROQUINE [Suspect]
     Dosage: UNK
  8. CEFTIN [Suspect]
     Dosage: UNK
  9. CLARITIN-D [Suspect]
     Dosage: UNK
  10. PLAQUENIL [Suspect]
     Dosage: UNK
  11. SUDAFED 12 HOUR [Suspect]
     Dosage: UNK
  12. SKELAXIN [Suspect]
     Dosage: UNK
  13. METHOTREXATE SODIUM [Suspect]
     Dosage: UNK
  14. PARAFON FORTE [Suspect]
     Dosage: UNK
  15. ULTRAM [Suspect]
     Dosage: UNK
  16. PREDNISONE TAB [Suspect]
     Dosage: UNK
  17. LINCOCIN [Suspect]
     Dosage: UNK
  18. CIPROFLOXACIN [Suspect]
     Dosage: UNK
  19. BENZYLPENICILLIN POTASSIUM [Suspect]
     Dosage: UNK

REACTIONS (1)
  - DRUG HYPERSENSITIVITY [None]
